FAERS Safety Report 5681757-9 (Version None)
Quarter: 2008Q1

REPORT INFORMATION
  Report Type: 
  Country: None (occurrence: None)
  Receive Date: 20080326
  Receipt Date: 20070308
  Transmission Date: 20080703
  Serious: No
  Sender: FDA-Public Use
  Company Number: US-BAYER-US-2007-008404

PATIENT
  Age: 39 Year
  Sex: Female
  Weight: 78 kg

DRUGS (2)
  1. MIRENA [Suspect]
     Indication: CONTRACEPTION
     Route: 015
     Dates: start: 20070201
  2. XANAX [Concomitant]

REACTIONS (3)
  - FEMALE SEXUAL DYSFUNCTION [None]
  - LIBIDO DECREASED [None]
  - ORGASM ABNORMAL [None]
